FAERS Safety Report 7459438-0 (Version None)
Quarter: 2011Q2

REPORT INFORMATION
  Report Type: 
  Country: None (occurrence: None)
  Receive Date: 20110505
  Receipt Date: 20110429
  Transmission Date: 20111010
  Serious: Yes (Hospitalization, Other)
  Sender: FDA-Public Use
  Company Number: US-ROXANE LABORATORIES, INC.-2011-RO-00594RO

PATIENT
  Age: 51 Year
  Sex: Male

DRUGS (5)
  1. TRAZODONE HCL [Suspect]
     Dosage: 300 MG
  2. OXYCODONE HCL AND ACETAMINOPHEN [Suspect]
     Indication: PAIN
  3. DULOXETINE [Suspect]
     Dosage: 60 MG
  4. LITHIUM CARBONATE [Suspect]
     Indication: BIPOLAR DISORDER
     Dosage: 1050 MG
  5. HALOPERIDOL [Suspect]
     Dosage: 10 MG

REACTIONS (2)
  - DEHYDRATION [None]
  - TOXICITY TO VARIOUS AGENTS [None]
